FAERS Safety Report 4874208-5 (Version None)
Quarter: 2005Q4

REPORT INFORMATION
  Report Type: 
  Country: None (occurrence: None)
  Receive Date: 20051201
  Receipt Date: 20050808
  Transmission Date: 20060501
  Serious: No
  Sender: FDA-Public Use
  Company Number: 2005PV000993

PATIENT
  Age: 53 Year
  Sex: Female

DRUGS (5)
  1. BYETTA [Suspect]
     Indication: DIABETES MELLITUS NON-INSULIN-DEPENDENT
     Dosage: 5 MCG; BID; SC
     Route: 058
     Dates: start: 20050804
  2. DIET MEDICATION [Suspect]
     Indication: WEIGHT DECREASED
     Dosage: PO
     Route: 048
     Dates: start: 20050624
  3. AMARYL [Concomitant]
  4. BLOOD PRESSURE MEDICATION [Concomitant]
  5. DIET MEDICATION [Concomitant]

REACTIONS (5)
  - DECREASED APPETITE [None]
  - EMOTIONAL DISTRESS [None]
  - MOOD SWINGS [None]
  - NERVOUSNESS [None]
  - STRESS [None]
